FAERS Safety Report 11598511 (Version 1)
Quarter: 2015Q3

REPORT INFORMATION
  Report Type: Spontaneous
  Country: US (occurrence: US)
  Receive Date: 20150916
  Receipt Date: 20150916
  Transmission Date: 20151125
  Serious: No
  Sender: FDA-Public Use
  Company Number: US-ELI_LILLY_AND_COMPANY-US200712002771

PATIENT
  Age: 68 Year
  Sex: Female
  Weight: 69.84 kg

DRUGS (5)
  1. NORVASC /00972401/ [Concomitant]
     Dosage: 10 MG, DAILY (1/D)
  2. EVISTA [Concomitant]
     Active Substance: RALOXIFENE HYDROCHLORIDE
     Dosage: 60 MG, DAILY (1/D)
  3. FORTEO [Suspect]
     Active Substance: TERIPARATIDE
     Indication: OSTEOPOROSIS
     Dosage: UNK, UNK
     Dates: start: 200601, end: 200712
  4. DIOVAN /01319601/ [Concomitant]
     Dosage: 160 MG, DAILY (1/D)
  5. CALCIUM CARBONATE. [Concomitant]
     Active Substance: CALCIUM CARBONATE
     Dosage: 500 MG, DAILY (1/D)

REACTIONS (6)
  - Blood calcium increased [Recovered/Resolved]
  - Muscular weakness [Unknown]
  - Psychomotor hyperactivity [Unknown]
  - Insomnia [Unknown]
  - Feeling jittery [Unknown]
  - Anxiety [Unknown]

NARRATIVE: CASE EVENT DATE: 20071105
